FAERS Safety Report 10281777 (Version 4)
Quarter: 2015Q1

REPORT INFORMATION
  Report Type: Report from Study
  Country: LT (occurrence: LT)
  Receive Date: 20140707
  Receipt Date: 20150202
  Transmission Date: 20150720
  Serious: Yes (Death, Life-Threatening)
  Sender: FDA-Public Use
  Company Number: LT-SA-2014SA088508

PATIENT
  Age: 60 Year
  Sex: Female

DRUGS (12)
  1. RANITIDINE [Concomitant]
     Active Substance: RANITIDINE\RANITIDINE HYDROCHLORIDE
     Indication: PROPHYLAXIS
     Dates: start: 20140616, end: 20140616
  2. TAVEGYL [Concomitant]
     Active Substance: CLEMASTINE FUMARATE
     Indication: PROPHYLAXIS
     Dates: start: 20140616, end: 20140616
  3. DOCETAXEL. [Suspect]
     Active Substance: DOCETAXEL
     Indication: BREAST CANCER
     Route: 065
     Dates: start: 20140617, end: 20140617
  4. SODIUM CHLORIDE. [Concomitant]
     Active Substance: SODIUM CHLORIDE
     Dates: start: 20140625, end: 20140625
  5. PERTUZUMAB [Suspect]
     Active Substance: PERTUZUMAB
     Indication: BREAST CANCER
     Route: 042
     Dates: start: 20140616, end: 20140616
  6. PERINDOPRIL [Concomitant]
     Active Substance: PERINDOPRIL
     Indication: HYPERTENSION
     Dosage: STRENGTH:2.5 MG
     Dates: start: 20140516, end: 20140625
  7. SODIUM CHLORIDE. [Concomitant]
     Active Substance: SODIUM CHLORIDE
     Dosage: 0.9% SOLUTION?TOTAL DAILY DOSE: 250-750ML
     Dates: start: 20140616, end: 20140617
  8. ONDANSETRON [Concomitant]
     Active Substance: ONDANSETRON
     Indication: PROPHYLAXIS
     Dates: start: 20140616, end: 20140616
  9. DEXAMETHASONE. [Concomitant]
     Active Substance: DEXAMETHASONE
     Indication: PROPHYLAXIS
     Dates: start: 20140516, end: 20140618
  10. METOPROLOL SALT NOT SPECIFIED [Concomitant]
     Active Substance: METOPROLOL
  11. SODIUM CHLORIDE. [Concomitant]
     Active Substance: SODIUM CHLORIDE
     Dates: start: 20140625, end: 20140625
  12. TRASTUZUMAB [Suspect]
     Active Substance: TRASTUZUMAB
     Indication: BREAST CANCER
     Route: 042
     Dates: start: 20140617, end: 20140617

REACTIONS (3)
  - Peritonitis [Fatal]
  - Neutropenia [Not Recovered/Not Resolved]
  - Gastrointestinal perforation [Fatal]

NARRATIVE: CASE EVENT DATE: 20140625
